FAERS Safety Report 17563510 (Version 2)
Quarter: 2023Q1

REPORT INFORMATION
  Report Type: Spontaneous
  Country: CA (occurrence: CA)
  Receive Date: 20200320
  Receipt Date: 20230306
  Transmission Date: 20230418
  Serious: Yes (Other)
  Sender: FDA-Public Use
  Company Number: CA-BRISTOL-MYERS SQUIBB COMPANY-BMS-2020-022566

PATIENT
  Age: 67 Year
  Sex: Male

DRUGS (17)
  1. ORENCIA [Suspect]
     Active Substance: ABATACEPT
     Indication: Rheumatoid arthritis
  2. RITUXIMAB [Concomitant]
     Active Substance: RITUXIMAB
     Indication: Rheumatoid arthritis
     Route: 042
  3. ENBREL [Concomitant]
     Active Substance: ETANERCEPT
     Indication: Rheumatoid arthritis
  4. GOLIMUMAB [Concomitant]
     Active Substance: GOLIMUMAB
     Indication: Product used for unknown indication
  5. ACTEMRA [Concomitant]
     Active Substance: TOCILIZUMAB
     Indication: Rheumatoid arthritis
  6. ATORVASTATIN [Concomitant]
     Active Substance: ATORVASTATIN
     Indication: Product used for unknown indication
  7. HYDROXYCHLOROQUINE [Concomitant]
     Active Substance: HYDROXYCHLOROQUINE
     Indication: Product used for unknown indication
  8. LEFLUNOMIDE [Concomitant]
     Active Substance: LEFLUNOMIDE
     Indication: Product used for unknown indication
  9. METHOTREXATE [Concomitant]
     Active Substance: METHOTREXATE
     Indication: Product used for unknown indication
  10. ASPIRIN [Concomitant]
     Active Substance: ASPIRIN
     Indication: Myocardial infarction
  11. ARAVA [Concomitant]
     Active Substance: LEFLUNOMIDE
     Indication: Product used for unknown indication
  12. AZATHIOPRINE [Concomitant]
     Active Substance: AZATHIOPRINE
     Indication: Product used for unknown indication
  13. HYDROXYCHLOROQUINE SULFATE [Concomitant]
     Active Substance: HYDROXYCHLOROQUINE SULFATE
     Indication: Product used for unknown indication
  14. HYDROXYCHLOROQUINE SULFATE [Concomitant]
     Active Substance: HYDROXYCHLOROQUINE SULFATE
  15. GOLD SODIUM THIOMALATE [Concomitant]
     Active Substance: GOLD SODIUM THIOMALATE
     Indication: Product used for unknown indication
  16. SULFASALAZINE [Concomitant]
     Active Substance: SULFASALAZINE
     Indication: Product used for unknown indication
  17. TIAPROFENIC ACID [Concomitant]
     Active Substance: TIAPROFENIC ACID
     Indication: Product used for unknown indication

REACTIONS (16)
  - Bone erosion [Recovered/Resolved]
  - Drug ineffective [Recovered/Resolved]
  - Rheumatoid arthritis [Recovered/Resolved]
  - Synovitis [Recovered/Resolved]
  - Treatment failure [Recovered/Resolved]
  - Arthropathy [Recovered/Resolved]
  - Back pain [Recovered/Resolved]
  - Gait inability [Recovered/Resolved]
  - Hand deformity [Recovered/Resolved]
  - Insomnia [Recovered/Resolved]
  - Limb discomfort [Recovered/Resolved]
  - Liver disorder [Recovered/Resolved]
  - Localised infection [Recovered/Resolved]
  - Musculoskeletal discomfort [Recovered/Resolved]
  - Pain in extremity [Recovered/Resolved]
  - Therapeutic product effect decreased [Recovered/Resolved]
